FAERS Safety Report 15274828 (Version 1)
Quarter: 2018Q3

REPORT INFORMATION
  Report Type: Spontaneous
  Country: US (occurrence: US)
  Receive Date: 20180727
  Receipt Date: 20180727
  Transmission Date: 20181010
  Serious: Yes (Other)
  Sender: FDA-Public Use
  Company Number: None

PATIENT
  Age: 84 Year
  Sex: Female

DRUGS (17)
  1. AMODARONE [Concomitant]
     Dates: start: 20180726
  2. LASIX [Concomitant]
     Active Substance: FUROSEMIDE
     Dates: start: 20180726
  3. MULTIPLE VIT [Concomitant]
     Dates: start: 20180726
  4. NEXIUM [Concomitant]
     Active Substance: ESOMEPRAZOLE MAGNESIUM
     Dates: start: 20180726
  5. IRON [Concomitant]
     Active Substance: IRON
     Dates: start: 20180726
  6. NYSTATIN POW [Concomitant]
     Dates: start: 20180726
  7. CLARITIN [Concomitant]
     Active Substance: LORATADINE
     Dates: start: 20180726
  8. LYRICA [Concomitant]
     Active Substance: PREGABALIN
     Dates: start: 20180726
  9. PERCOCET [Concomitant]
     Active Substance: ACETAMINOPHEN\OXYCODONE HYDROCHLORIDE
     Dates: start: 20180726
  10. GLEEVEC [Suspect]
     Active Substance: IMATINIB MESYLATE
     Indication: CHRONIC MYELOID LEUKAEMIA
     Route: 048
     Dates: start: 20180228
  11. ASPIRIN. [Concomitant]
     Active Substance: ASPIRIN
     Dates: start: 20180726
  12. KLOR?CON M20 [Concomitant]
     Active Substance: POTASSIUM CHLORIDE
     Dates: start: 20180726
  13. ASCORBIC ACD [Concomitant]
     Dates: start: 20180726
  14. ONDANSETRON [Concomitant]
     Active Substance: ONDANSETRON
     Dates: start: 20180726
  15. COLACE [Concomitant]
     Active Substance: DOCUSATE SODIUM
     Dates: start: 20180726
  16. GLUCOSAMINE [Concomitant]
     Active Substance: GLUCOSAMINE
     Dates: start: 20180726
  17. VITAMIN E [Concomitant]
     Active Substance: .ALPHA.-TOCOPHEROL
     Dates: start: 20180726

REACTIONS (1)
  - Gallbladder operation [None]
